FAERS Safety Report 21634409 (Version 3)
Quarter: 2023Q1

REPORT INFORMATION
  Report Type: Report from Study
  Country: CH (occurrence: CH)
  Receive Date: 20221123
  Receipt Date: 20230321
  Transmission Date: 20230417
  Serious: Yes (Hospitalization)
  Sender: FDA-Public Use
  Company Number: CH-ABBVIE-4210871

PATIENT
  Age: 42 Year
  Sex: Female
  Weight: 65 kg

DRUGS (2)
  1. SKYRIZI [Suspect]
     Active Substance: RISANKIZUMAB-RZAA
     Indication: Psoriasis
     Route: 058
     Dates: start: 20210519
  2. FEMANNOSE [Concomitant]
     Indication: Product used for unknown indication
     Dosage: SACHET
     Route: 048
     Dates: start: 20221025

REACTIONS (6)
  - Pyelonephritis [Recovered/Resolved]
  - Acne [Unknown]
  - Escherichia infection [Recovered/Resolved]
  - Blood creatinine increased [Recovered/Resolved]
  - Infection [Recovered/Resolved]
  - Urinary tract infection [Recovered/Resolved]

NARRATIVE: CASE EVENT DATE: 20221005
